FAERS Safety Report 4682320-9 (Version None)
Quarter: 2005Q2

REPORT INFORMATION
  Report Type: 
  Country: None (occurrence: None)
  Receive Date: 20050602
  Receipt Date: 20050602
  Transmission Date: 20051028
  Serious: Yes (Other)
  Sender: FDA-Public Use
  Company Number: None

PATIENT
  Sex: Male
  Weight: 54.4316 kg

DRUGS (2)
  1. CELEXA [Suspect]
     Indication: ABNORMAL BEHAVIOUR
     Dosage: 10 MG ONCE DAILY ORAL
     Route: 048
     Dates: start: 20041229, end: 20050405
  2. SODIUM BARCARBINATE [Concomitant]

REACTIONS (5)
  - AGGRESSION [None]
  - CRYING [None]
  - INSOMNIA [None]
  - IRRITABILITY [None]
  - PHARMACEUTICAL PRODUCT COMPLAINT [None]
